APPROVED DRUG PRODUCT: LOSARTAN POTASSIUM
Active Ingredient: LOSARTAN POTASSIUM
Strength: 100MG
Dosage Form/Route: TABLET;ORAL
Application: A218551 | Product #003
Applicant: APOTEX INC
Approved: Jun 4, 2024 | RLD: No | RS: No | Type: DISCN